FAERS Safety Report 9571466 (Version 1)
Quarter: 2013Q1

REPORT INFORMATION
  Report Type: Spontaneous
  Country: US (occurrence: None)
  Receive Date: 20130305
  Receipt Date: 20130305
  Transmission Date: 20140127
  Serious: Yes (Hospitalization)
  Sender: FDA-Public Use
  Company Number: 163-21880-12060042

PATIENT
  Age: 57 Year
  Sex: Male

DRUGS (9)
  1. REVLIMID (LENALIDOMIDE) (25 MILLIGRAM, CAPSULES) [Suspect]
     Indication: PLASMA CELL MYELOMA
     Dosage: QD X 21 DAYS
     Route: 048
     Dates: start: 201106
  2. ASPIRIN (ACETYLSALICYLIC ACID) [Concomitant]
  3. DEXAMETHASONE (DEXAMETHASONE) [Concomitant]
  4. HYDROCODONE (HYDROCODONE) [Concomitant]
  5. MORPHINE [Concomitant]
  6. MV (MV) [Concomitant]
  7. OSCAL (CALCIUM CARBONATE) [Concomitant]
  8. PROCHLORPER (PROCHLORPERAZINE) [Concomitant]
  9. ROPINOLE (ROPINIROLE) [Concomitant]

REACTIONS (2)
  - Pyrexia [None]
  - Dyspnoea [None]
